FAERS Safety Report 9116136 (Version 2)
Quarter: 2013Q1

REPORT INFORMATION
  Report Type: Spontaneous
  Country: AU (occurrence: AU)
  Receive Date: 20130225
  Receipt Date: 20130326
  Transmission Date: 20140127
  Serious: Yes (Hospitalization)
  Sender: FDA-Public Use
  Company Number: PHHY2013AU017901

PATIENT
  Age: 75 Year
  Sex: Male

DRUGS (1)
  1. ACLASTA [Suspect]
     Dosage: 5 MG, UNK
     Route: 042
     Dates: start: 20120314

REACTIONS (2)
  - Myocardial infarction [Recovered/Resolved]
  - Chest pain [Not Recovered/Not Resolved]
